FAERS Safety Report 6361183-X (Version None)
Quarter: 2009Q3

REPORT INFORMATION
  Report Type: 
  Country: None (occurrence: None)
  Receive Date: 20090915
  Receipt Date: 20090915
  Transmission Date: 20100115
  Serious: Yes (Other)
  Sender: FDA-Public Use
  Company Number: None

PATIENT
  Age: 32 Year
  Sex: Female
  Weight: 49.8957 kg

DRUGS (1)
  1. ZICAM ZICAM, LLC [Suspect]
     Indication: NASOPHARYNGITIS
     Dosage: 1 DEPRESSION PER NOSTRAL Q 4 HOURS NASAL
     Route: 045
     Dates: start: 20090601, end: 20090604

REACTIONS (2)
  - ANOSMIA [None]
  - HYPOSMIA [None]
